FAERS Safety Report 6313579-X (Version None)
Quarter: 2009Q3

REPORT INFORMATION
  Report Type: 
  Country: None (occurrence: None)
  Receive Date: 20090818
  Receipt Date: 20090812
  Transmission Date: 20100115
  Serious: Yes (Death)
  Sender: FDA-Public Use
  Company Number: JP-BRISTOL-MYERS SQUIBB COMPANY-14741326

PATIENT
  Age: 43 Year
  Sex: Male

DRUGS (5)
  1. REYATAZ [Suspect]
     Indication: HIV INFECTION
     Route: 048
     Dates: start: 20060905, end: 20080625
  2. ABACAVIR SULFATE [Suspect]
     Indication: HIV INFECTION
     Dates: start: 20060905, end: 20080625
  3. RITONAVIR [Suspect]
     Indication: HIV INFECTION
     Dates: start: 20060905, end: 20080625
  4. RIBAVIRIN [Concomitant]
     Dosage: 1 DF-400X2MG
     Dates: start: 20080505, end: 20080625
  5. PEG-INTRON [Concomitant]
     Dates: start: 20080507, end: 20080625

REACTIONS (1)
  - COMPLETED SUICIDE [None]
